FAERS Safety Report 11429203 (Version 1)
Quarter: 2015Q3

REPORT INFORMATION
  Report Type: Spontaneous
  Country: US (occurrence: US)
  Receive Date: 20150828
  Receipt Date: 20150828
  Transmission Date: 20151125
  Serious: No
  Sender: FDA-Public Use
  Company Number: US-ROCHE-1228895

PATIENT
  Sex: Male

DRUGS (4)
  1. PEGASYS [Suspect]
     Active Substance: PEGINTERFERON ALFA-2A
     Indication: CHRONIC HEPATITIS C
     Route: 058
     Dates: start: 20130511, end: 20130523
  2. TELAPREVIR [Suspect]
     Active Substance: TELAPREVIR
     Indication: CHRONIC HEPATITIS C
     Route: 065
     Dates: start: 20130511, end: 20130523
  3. NOVOLOG [Concomitant]
     Active Substance: INSULIN ASPART
     Dosage: 7 UNITS OF INSULIN
     Route: 065
  4. RIBASPHERE [Suspect]
     Active Substance: RIBAVIRIN
     Indication: CHRONIC HEPATITIS C
     Route: 048
     Dates: start: 20130511, end: 20130523

REACTIONS (2)
  - Vision blurred [Not Recovered/Not Resolved]
  - Dizziness [Unknown]
